FAERS Safety Report 15082294 (Version 1)
Quarter: 2018Q2

REPORT INFORMATION
  Report Type: Spontaneous
  Country: US (occurrence: US)
  Receive Date: 20180628
  Receipt Date: 20180628
  Transmission Date: 20180711
  Serious: Yes (Hospitalization, Other)
  Sender: FDA-Public Use
  Company Number: PHEH2018US026239

PATIENT
  Age: 55 Year
  Sex: Female
  Weight: 80.73 kg

DRUGS (1)
  1. ZORTRESS [Suspect]
     Active Substance: EVEROLIMUS
     Indication: RENAL TRANSPLANT
     Dosage: 3 MG, QD
     Route: 048

REACTIONS (7)
  - Hernia [Unknown]
  - Urinary tract infection [Unknown]
  - Gastrointestinal haemorrhage [Unknown]
  - Ill-defined disorder [Unknown]
  - Ulcer haemorrhage [Unknown]
  - Diverticulitis [Unknown]
  - Gastritis [Unknown]

NARRATIVE: CASE EVENT DATE: 20180611
